FAERS Safety Report 17049374 (Version 1)
Quarter: 2019Q4

REPORT INFORMATION
  Report Type: Report from Study
  Country: DE (occurrence: DE)
  Receive Date: 20191119
  Receipt Date: 20191119
  Transmission Date: 20200122
  Serious: Yes (Other)
  Sender: FDA-Public Use
  Company Number: DE-AMGEN-DEUSL2019181626

PATIENT
  Age: 64 Year
  Sex: Male
  Weight: 125 kg

DRUGS (1)
  1. VECTIBIX [Suspect]
     Active Substance: PANITUMUMAB
     Indication: COLON CANCER
     Dosage: 6 MILLIGRAM/KILOGRAM
     Route: 042
     Dates: start: 20190729

REACTIONS (1)
  - Superinfection bacterial [Recovering/Resolving]

NARRATIVE: CASE EVENT DATE: 20190808
